FAERS Safety Report 21469956 (Version 1)
Quarter: 2022Q4

REPORT INFORMATION
  Report Type: Report from Study
  Country: US (occurrence: US)
  Receive Date: 20221018
  Receipt Date: 20221018
  Transmission Date: 20230113
  Serious: Yes (Other)
  Sender: FDA-Public Use
  Company Number: US-BRISTOL-MYERS SQUIBB COMPANY-2022-122059

PATIENT
  Age: 68 Year
  Sex: Male
  Weight: 88.0 kg

DRUGS (10)
  1. REVLIMID [Suspect]
     Active Substance: LENALIDOMIDE
     Indication: Plasma cell myeloma
     Dosage: DOSE: DAILY, ORALLY
     Route: 048
     Dates: start: 2020
  2. PAXLOVID [Concomitant]
     Active Substance: NIRMATRELVIR\RITONAVIR
  3. OXYCODONE [Concomitant]
     Active Substance: OXYCODONE
  4. LATANOPROST [Concomitant]
     Active Substance: LATANOPROST
  5. VITAMIN C [Concomitant]
     Active Substance: ASCORBIC ACID
  6. MORNIFLUMATE [Concomitant]
     Active Substance: MORNIFLUMATE
  7. VALACYCLOVIR [Concomitant]
     Active Substance: VALACYCLOVIR HYDROCHLORIDE
  8. ASPIRIN [Concomitant]
     Active Substance: ASPIRIN
  9. LOSARTAN [Concomitant]
     Active Substance: LOSARTAN
  10. AMLODIPINE BESYLATE [Concomitant]
     Active Substance: AMLODIPINE BESYLATE

REACTIONS (1)
  - COVID-19 [Unknown]

NARRATIVE: CASE EVENT DATE: 20221011
